FAERS Safety Report 7445873-3 (Version None)
Quarter: 2011Q2

REPORT INFORMATION
  Report Type: 
  Country: None (occurrence: None)
  Receive Date: 20110429
  Receipt Date: 20110418
  Transmission Date: 20111010
  Serious: Yes (Hospitalization)
  Sender: FDA-Public Use
  Company Number: GB-ELI_LILLY_AND_COMPANY-GB201103004454

PATIENT
  Sex: Male
  Weight: 94 kg

DRUGS (3)
  1. ASPIRIN [Concomitant]
     Dosage: 75 MG, UNK
     Route: 065
  2. SIMVASTATIN [Concomitant]
     Dosage: 40 MG, UNK
  3. ZYPADHERA [Suspect]
     Indication: SCHIZOPHRENIA
     Dosage: 300 MG, TWO WEEKLY
     Route: 030
     Dates: start: 20101201

REACTIONS (2)
  - THERAPEUTIC RESPONSE DELAYED [None]
  - GENERAL PHYSICAL HEALTH DETERIORATION [None]
